FAERS Safety Report 6336531-7 (Version None)
Quarter: 2009Q3

REPORT INFORMATION
  Report Type: 
  Country: None (occurrence: None)
  Receive Date: 20090831
  Receipt Date: 20090831
  Transmission Date: 20100115
  Serious: Yes (Hospitalization)
  Sender: FDA-Public Use
  Company Number: None

PATIENT
  Age: 68 Year
  Sex: Male
  Weight: 104 kg

DRUGS (1)
  1. FEBUXOSTAT [Suspect]
     Indication: GOUT
     Dosage: 80 MG EVERY DAY PO
     Route: 048
     Dates: start: 20090308, end: 20090428

REACTIONS (9)
  - AZOTAEMIA [None]
  - CARDIAC FAILURE [None]
  - CONDITION AGGRAVATED [None]
  - DIALYSIS [None]
  - FLUID OVERLOAD [None]
  - ORTHOPNOEA [None]
  - RENAL FAILURE ACUTE [None]
  - RENAL FAILURE CHRONIC [None]
  - WEIGHT INCREASED [None]
